FAERS Safety Report 21498927 (Version 1)
Quarter: 2022Q4

REPORT INFORMATION
  Report Type: Spontaneous
  Country: US (occurrence: US)
  Receive Date: 20221024
  Receipt Date: 20221024
  Transmission Date: 20230113
  Serious: Yes (Life-Threatening, Hospitalization)
  Sender: FDA-Public Use
  Company Number: US-MYLANLABS-2022M1116002

PATIENT
  Age: 60 Year
  Sex: Female

DRUGS (5)
  1. AMIODARONE [Suspect]
     Active Substance: AMIODARONE
     Indication: Supraventricular tachycardia
     Dosage: 150 MILLIGRAM (BOLUS)
     Route: 042
  2. AMIODARONE [Suspect]
     Active Substance: AMIODARONE
     Dosage: IV INFUSION 1MG/KG FOR 6HOURS
     Route: 042
  3. AMIODARONE [Suspect]
     Active Substance: AMIODARONE
     Dosage: 0.5 MILLIGRAM/KILOGRAM (INFUSION)
     Route: 042
  4. ADENOSINE [Suspect]
     Active Substance: ADENOSINE
     Indication: Supraventricular tachycardia
     Dosage: UNK
     Route: 065
  5. CEFTRIAXONE [Concomitant]
     Active Substance: CEFTRIAXONE
     Indication: Septic shock
     Dosage: UNK
     Route: 065

REACTIONS (4)
  - Acute hepatic failure [Unknown]
  - Hepatic encephalopathy [Unknown]
  - Drug-induced liver injury [Unknown]
  - Drug ineffective [Unknown]
